FAERS Safety Report 7272422-5 (Version None)
Quarter: 2011Q1

REPORT INFORMATION
  Report Type: 
  Country: None (occurrence: None)
  Receive Date: 20110203
  Receipt Date: 20100915
  Transmission Date: 20110831
  Serious: Yes (Hospitalization, Other)
  Sender: FDA-Public Use
  Company Number: CA-BAYER-201036473NA

PATIENT
  Sex: Female

DRUGS (2)
  1. MIRENA [Suspect]
     Indication: CONTRACEPTION
     Dosage: UNK
     Route: 015
     Dates: start: 20100801, end: 20100101
  2. SYNTHROID [Concomitant]

REACTIONS (14)
  - VIITH NERVE PARALYSIS [None]
  - ANXIETY [None]
  - DIPLEGIA [None]
  - CIRCULATORY COLLAPSE [None]
  - HEADACHE [None]
  - CEREBRAL INFARCTION [None]
  - WEIGHT INCREASED [None]
  - CRYING [None]
  - GENITAL HAEMORRHAGE [None]
  - DIZZINESS [None]
  - HEAD DISCOMFORT [None]
  - DEPRESSION [None]
  - FEELING HOT [None]
  - DYSPHONIA [None]
